FAERS Safety Report 12713088 (Version 1)
Quarter: 2016Q3

REPORT INFORMATION
  Report Type: Spontaneous
  Country: JP (occurrence: JP)
  Receive Date: 20160902
  Receipt Date: 20160902
  Transmission Date: 20161109
  Serious: Yes (Hospitalization)
  Sender: FDA-Public Use
  Company Number: JP-TAKEDA-2016TUS015703

PATIENT
  Age: 73 Year
  Sex: Male
  Weight: 87.6 kg

DRUGS (9)
  1. METHYCOBAL [Concomitant]
     Active Substance: METHYLCOBALAMIN
     Indication: PRODUCT USED FOR UNKNOWN INDICATION
     Dosage: 500 ?G, TID
     Route: 048
     Dates: start: 20091202
  2. LANTUS [Concomitant]
     Active Substance: INSULIN GLARGINE
     Indication: PRODUCT USED FOR UNKNOWN INDICATION
     Dosage: 12 IU, TID
     Route: 058
     Dates: start: 20071102
  3. HUMALOG [Concomitant]
     Active Substance: INSULIN LISPRO
     Dosage: 12 IU, TID
     Route: 058
     Dates: start: 20071102
  4. BAYASPIRIN [Concomitant]
     Active Substance: ASPIRIN
     Indication: PRODUCT USED FOR UNKNOWN INDICATION
     Dosage: 100 MG, QD
     Route: 048
     Dates: start: 20121016
  5. FEBURIC [Suspect]
     Active Substance: FEBUXOSTAT
     Indication: HYPERURICAEMIA
     Dosage: 40 MG, QD
     Route: 048
     Dates: start: 20130509
  6. OLMETEC [Concomitant]
     Active Substance: OLMESARTAN MEDOXOMIL
     Indication: PRODUCT USED FOR UNKNOWN INDICATION
     Dosage: 10 MG, QD
     Route: 048
     Dates: start: 20080801
  7. HUMALOG [Concomitant]
     Active Substance: INSULIN LISPRO
     Dosage: 18 IU, QD
     Route: 058
     Dates: start: 20090114
  8. LANTUS [Concomitant]
     Active Substance: INSULIN GLARGINE
     Dosage: 18 IU, QD
     Route: 058
     Dates: start: 20090114
  9. LIPITOR [Concomitant]
     Active Substance: ATORVASTATIN CALCIUM
     Indication: PRODUCT USED FOR UNKNOWN INDICATION
     Dosage: 10 MG, QD
     Route: 048
     Dates: start: 20100519

REACTIONS (2)
  - Vitrectomy [Recovered/Resolved]
  - Vitrectomy [Recovered/Resolved]

NARRATIVE: CASE EVENT DATE: 20140224
